FAERS Safety Report 17275276 (Version 1)
Quarter: 2020Q1

REPORT INFORMATION
  Report Type: Spontaneous
  Country: GB (occurrence: GB)
  Receive Date: 20200116
  Receipt Date: 20200116
  Transmission Date: 20200409
  Serious: No
  Sender: FDA-Public Use
  Company Number: GB-LUPIN HEALTHCARE (UK) LIMITED-2019-07347

PATIENT
  Sex: Male

DRUGS (1)
  1. ABACAVIR/LAMIVUDIN LUPIN 600 MG / 300 MG FILM COATED TABLETS [Suspect]
     Active Substance: ABACAVIR\LAMIVUDINE
     Indication: HIV INFECTION
     Dosage: UNK
     Route: 065

REACTIONS (1)
  - Diarrhoea [Unknown]
